FAERS Safety Report 9364534 (Version 1)
Quarter: 2013Q2

REPORT INFORMATION
  Report Type: Spontaneous
  Country: TN (occurrence: TN)
  Receive Date: 20130624
  Receipt Date: 20130624
  Transmission Date: 20140414
  Serious: Yes (Other)
  Sender: FDA-Public Use
  Company Number: TN-ACTAVIS-2013-10819

PATIENT
  Age: 80 Year
  Sex: Male

DRUGS (1)
  1. DOCETAXEL (UNKNOWN) [Suspect]
     Indication: PROSTATE CANCER METASTATIC
     Dosage: UNK
     Route: 065

REACTIONS (5)
  - Nail bed bleeding [Recovered/Resolved]
  - Nail discolouration [Unknown]
  - Onycholysis [Unknown]
  - Oedema peripheral [Unknown]
  - Localised oedema [Unknown]
